FAERS Safety Report 6199820-5 (Version None)
Quarter: 2009Q2

REPORT INFORMATION
  Report Type: 
  Country: None (occurrence: None)
  Receive Date: 20090520
  Receipt Date: 20090520
  Transmission Date: 20091009
  Serious: Yes (Hospitalization)
  Sender: FDA-Public Use
  Company Number: None

PATIENT
  Age: 76 Year
  Sex: Male
  Weight: 105.69 kg

DRUGS (2)
  1. PIPERACILLIN AND TAZOBACTAM [Suspect]
     Indication: INFECTION
     Dates: start: 20090411, end: 20090420
  2. VANCOMYCIN HCL [Suspect]
     Indication: INFECTION
     Dates: start: 20090411, end: 20090420

REACTIONS (2)
  - CUTANEOUS VASCULITIS [None]
  - RENAL FAILURE ACUTE [None]
